FAERS Safety Report 26212627 (Version 2)
Quarter: 2025Q4

REPORT INFORMATION
  Report Type: Other
  Country: US (occurrence: US)
  Receive Date: 20251230
  Receipt Date: 20251230
  Transmission Date: 20260118
  Serious: No
  Sender: TRAVERE THERAPEUTICS
  Company Number: US-TRAVERE-2025TVT02371

PATIENT
  Age: 56 Year
  Sex: Female

DRUGS (2)
  1. FILSPARI [Suspect]
     Active Substance: SPARSENTAN
     Indication: IgA nephropathy
     Route: 048
     Dates: start: 20251125
  2. FILSPARI [Suspect]
     Active Substance: SPARSENTAN

REACTIONS (2)
  - Fungal infection [Unknown]
  - Abdominal pain [Unknown]
